FAERS Safety Report 18253783 (Version 1)
Quarter: 2020Q3

REPORT INFORMATION
  Report Type: Spontaneous
  Country: IT (occurrence: IT)
  Receive Date: 20200910
  Receipt Date: 20200910
  Transmission Date: 20201103
  Serious: Yes (Hospitalization, Other)
  Sender: FDA-Public Use
  Company Number: IT-SUN PHARMACEUTICAL INDUSTRIES LTD-2020RR-260268

PATIENT
  Age: 61 Year
  Sex: Male

DRUGS (3)
  1. OSELTAMIVIR [Suspect]
     Active Substance: OSELTAMIVIR
     Indication: INFLUENZA
     Dosage: 75 MILLIGRAM, BID
     Route: 048
  2. CLARITHROMYCIN. [Suspect]
     Active Substance: CLARITHROMYCIN
     Indication: INFLUENZA
     Dosage: 500 MILLIGRAM, BID
     Route: 048
  3. CEFTOBIPROLE [Suspect]
     Active Substance: CEFTOBIPROLE
     Indication: INFLUENZA
     Dosage: 500 MILLIGRAM X3
     Route: 042

REACTIONS (1)
  - Aspergillus infection [Recovering/Resolving]
